FAERS Safety Report 4883700-9 (Version None)
Quarter: 2006Q1

REPORT INFORMATION
  Report Type: 
  Country: None (occurrence: None)
  Receive Date: 20060118
  Receipt Date: 20060113
  Transmission Date: 20060701
  Serious: Yes (Death, Life-Threatening)
  Sender: FDA-Public Use
  Company Number: JP-BRISTOL-MYERS SQUIBB COMPANY-13248935

PATIENT
  Age: 23 Year
  Sex: Male

DRUGS (11)
  1. ZERIT [Suspect]
     Indication: HIV INFECTION
     Route: 048
     Dates: start: 19980223, end: 20040922
  2. EPIVIR [Suspect]
     Indication: HIV INFECTION
     Dosage: THERAPY STOPPED ON 22-FEB-1998 AND RESTARTED 20-MAR-1998.
     Route: 048
     Dates: start: 19971101, end: 20050208
  3. NORVIR [Suspect]
     Indication: HIV INFECTION
     Dosage: DOSE VALUE: 800-1200 MG PER DAY; THERAPY STOPPED ON 08-MAR-1998 AND RESTARTED 20-MAR-1998.
     Route: 048
     Dates: start: 19980304, end: 20050111
  4. FORTOVASE [Suspect]
     Indication: HIV INFECTION
     Route: 048
     Dates: start: 20000620, end: 20050111
  5. GLYCYRON [Concomitant]
     Route: 048
     Dates: start: 19971101
  6. INVIRASE [Concomitant]
     Route: 048
     Dates: start: 19980320
  7. RECOMBINATE [Concomitant]
     Dosage: THERAPY STOPPED ON 31-OCT-1998 AND RESTARTED ON 01-NOV-1998
     Route: 041
     Dates: start: 19980413, end: 20050219
  8. KALETRA [Concomitant]
     Route: 048
     Dates: start: 20050112, end: 20050208
  9. VIREAD [Concomitant]
     Route: 048
     Dates: start: 20040923, end: 20050208
  10. MEROPEN [Concomitant]
     Dates: start: 20050128, end: 20050209
  11. VANCOMYCIN [Concomitant]
     Dates: start: 20050201, end: 20050214

REACTIONS (5)
  - CEREBRAL HAEMORRHAGE [None]
  - DEATH [None]
  - HEPATIC CIRRHOSIS [None]
  - HEPATIC FAILURE [None]
  - SHOCK HAEMORRHAGIC [None]
